FAERS Safety Report 8465200-2 (Version None)
Quarter: 2012Q2

REPORT INFORMATION
  Report Type: 
  Country: None (occurrence: None)
  Receive Date: 20120626
  Receipt Date: 20120619
  Transmission Date: 20120825
  Serious: Yes (Hospitalization, Other)
  Sender: FDA-Public Use
  Company Number: PHHY2012IT044423

PATIENT
  Sex: Male

DRUGS (7)
  1. METOPROLOL TARTRATE [Concomitant]
     Dosage: 25 MG
     Route: 048
     Dates: start: 20090101
  2. SINEMET [Suspect]
     Dosage: 3 DF
     Dates: start: 20110201, end: 20120104
  3. CYMBALTA [Suspect]
     Indication: MAJOR DEPRESSION
     Dosage: 1 DF, UNK
     Dates: start: 20100101, end: 20111220
  4. ASPIRIN [Concomitant]
     Dosage: 100 MG
  5. CLOZAPINE [Suspect]
     Indication: MAJOR DEPRESSION
     Dosage: 37.5 MG
     Route: 048
     Dates: start: 20110201, end: 20120106
  6. RAMIPRIL [Concomitant]
  7. NOVONORM [Concomitant]

REACTIONS (2)
  - TARDIVE DYSKINESIA [None]
  - MENINGIOMA [None]
